FAERS Safety Report 24133718 (Version 1)
Quarter: 2024Q3

REPORT INFORMATION
  Report Type: Spontaneous
  Country: US (occurrence: US)
  Receive Date: 20240724
  Receipt Date: 20240724
  Transmission Date: 20241016
  Serious: Yes (Other)
  Sender: FRESENIUS KABI
  Company Number: US-FreseniusKabi-FK202411453

PATIENT
  Age: 56 Year
  Sex: Male

DRUGS (14)
  1. HEPARIN [Suspect]
     Active Substance: HEPARIN SODIUM
     Indication: Anticoagulant therapy
     Dosage: BOLUS 400 U/KG (A TOTAL OF 26,000 U) OF IV UNFRACTIONATED HEPARIN?94 MINUTES AFTER THE INITIAL POTAS
     Route: 042
  2. HEPARIN [Suspect]
     Active Substance: HEPARIN SODIUM
     Indication: Thrombosis prophylaxis
     Route: 058
  3. SUFENTANIL [Concomitant]
     Active Substance: SUFENTANIL
     Indication: General anaesthesia
     Route: 042
  4. LIDOCAINE [Concomitant]
     Active Substance: LIDOCAINE
     Indication: General anaesthesia
     Route: 042
  5. PROPOFOL [Concomitant]
     Active Substance: PROPOFOL
     Indication: General anaesthesia
     Route: 042
  6. ROCURONIUM [Concomitant]
     Active Substance: ROCURONIUM BROMIDE
     Indication: Hypotonia
  7. SEVOFLURANE [Concomitant]
     Active Substance: SEVOFLURANE
     Indication: Maintenance of anaesthesia
  8. CEFAZOLIN [Concomitant]
     Active Substance: CEFAZOLIN
     Indication: Product used for unknown indication
  9. TRANEXAMIC ACID [Concomitant]
     Active Substance: TRANEXAMIC ACID
     Indication: Product used for unknown indication
  10. compound sodium lactate solution [Concomitant]
     Indication: Product used for unknown indication
  11. CARDIOPLEGIA [Concomitant]
     Indication: Vascular graft
     Dosage: DEL NIDO FORMULA, 26 MMOL/L POTASSIUM CHLORIDE
  12. ISOFLURANE [Concomitant]
     Active Substance: ISOFLURANE
     Indication: Maintenance of anaesthesia
  13. NOREPINEPHRINE [Concomitant]
     Active Substance: NOREPINEPHRINE\NOREPINEPHRINE BITARTRATE
     Indication: Product used for unknown indication
     Dosage: INFUSION AT 0.03 MG/KG/MINUTE
  14. MILRINONE [Concomitant]
     Active Substance: MILRINONE
     Indication: Product used for unknown indication
     Dosage: INFUSION AT 0.375 MG/KG/MINUTE

REACTIONS (1)
  - Hyperkalaemia [Recovering/Resolving]
